FAERS Safety Report 15451670 (Version 4)
Quarter: 2018Q4

REPORT INFORMATION
  Report Type: Spontaneous
  Country: JP (occurrence: JP)
  Receive Date: 20181001
  Receipt Date: 20181213
  Transmission Date: 20190204
  Serious: Yes (Hospitalization)
  Sender: FDA-Public Use
  Company Number: JP-UNITED THERAPEUTICS-UNT-2018-014008

PATIENT
  Age: 29 Year
  Sex: Male
  Weight: 80 kg

DRUGS (3)
  1. REMODULIN [Suspect]
     Active Substance: TREPROSTINIL
     Dosage: 23 ?L/HR
     Route: 058
     Dates: start: 2018
  2. REMODULIN [Suspect]
     Active Substance: TREPROSTINIL
     Dosage: 0.0156 ?G/KG, CONTINUING
     Route: 058
  3. REMODULIN [Suspect]
     Active Substance: TREPROSTINIL
     Indication: PULMONARY ARTERIAL HYPERTENSION
     Dosage: UNK
     Route: 058
     Dates: start: 20180822

REACTIONS (5)
  - Cholecystitis [Recovered/Resolved]
  - Infusion site erythema [Unknown]
  - Infusion site haemorrhage [Recovered/Resolved]
  - Infusion site pruritus [Unknown]
  - Infusion site pain [Recovering/Resolving]

NARRATIVE: CASE EVENT DATE: 2018
